FAERS Safety Report 8553104-6 (Version None)
Quarter: 2012Q3

REPORT INFORMATION
  Report Type: 
  Country: None (occurrence: None)
  Receive Date: 20120731
  Receipt Date: 20120724
  Transmission Date: 20120928
  Serious: No
  Sender: FDA-Public Use
  Company Number: US-B.I. PHARMACEUTICALS,INC./RIDGEFIELD-2012-BP-16567BP

PATIENT
  Age: 72 Year
  Sex: Male

DRUGS (4)
  1. DIGOXIN [Concomitant]
     Indication: ATRIAL FIBRILLATION
  2. TAMSULOSIN HCL [Concomitant]
     Indication: BENIGN PROSTATIC HYPERPLASIA
     Dosage: 0.4 MG
     Route: 048
     Dates: start: 20020101
  3. PRADAXA [Suspect]
     Indication: ATRIAL FIBRILLATION
     Dosage: 300 MG
     Route: 048
     Dates: start: 20110501
  4. PROSCAR [Concomitant]
     Indication: BENIGN PROSTATIC HYPERPLASIA
     Dosage: 5 MG
     Route: 048
     Dates: start: 20020101

REACTIONS (3)
  - MUSCULOSKELETAL PAIN [None]
  - INCORRECT DOSE ADMINISTERED [None]
  - ARTHROPATHY [None]
